FAERS Safety Report 21500286 (Version 1)
Quarter: 2022Q4

REPORT INFORMATION
  Report Type: Spontaneous
  Country: FR (occurrence: FR)
  Receive Date: 20221024
  Receipt Date: 20221024
  Transmission Date: 20230113
  Serious: Yes (Other)
  Sender: FDA-Public Use
  Company Number: None

PATIENT
  Age: 79 Year
  Sex: Male

DRUGS (2)
  1. IPILIMUMAB [Suspect]
     Active Substance: IPILIMUMAB
     Indication: Desmoplastic melanoma
     Dosage: 3 MG/KG
     Route: 042
     Dates: start: 20220104
  2. NIVOLUMAB [Suspect]
     Active Substance: NIVOLUMAB
     Indication: Desmoplastic melanoma
     Dosage: 1MG/KG
     Route: 065
     Dates: start: 20220104

REACTIONS (1)
  - Myelodysplastic syndrome [Not Recovered/Not Resolved]

NARRATIVE: CASE EVENT DATE: 20220726
